FAERS Safety Report 14688455 (Version 1)
Quarter: 2018Q1

REPORT INFORMATION
  Report Type: Other
  Country: GB (occurrence: GB)
  Receive Date: 20180328
  Receipt Date: 20180328
  Transmission Date: 20180509
  Serious: Yes (Other)
  Sender: FDA-Public Use
  Company Number: GB-DENTSPLY-2018SCDP000031

PATIENT
  Age: 80 Year
  Sex: Male

DRUGS (1)
  1. XYLOCAINE DENTAL (LIDOCAINE HCL INJECTION), USP 2% [Suspect]
     Active Substance: EPINEPHRINE\LIDOCAINE
     Indication: SUNCT SYNDROME
     Dosage: 1-4 MG/MIN,1 MINUTE FOR 7 DAYS
     Route: 042

REACTIONS (1)
  - Sinus tachycardia [Unknown]
